FAERS Safety Report 17922924 (Version 1)
Quarter: 2020Q2

REPORT INFORMATION
  Report Type: Spontaneous
  Country: US (occurrence: US)
  Receive Date: 20200619
  Receipt Date: 20200619
  Transmission Date: 20200714
  Serious: Yes (Hospitalization)
  Sender: FDA-Public Use
  Company Number: None

PATIENT
  Age: 56 Year
  Sex: Male

DRUGS (2)
  1. CINACALCET HCL 30MG CIPLA USA [Suspect]
     Active Substance: CINACALCET HYDROCHLORIDE
     Indication: RENAL TRANSPLANT
     Route: 048
     Dates: start: 20170131
  2. SIROLIMUS 0.5MG GREENSTONE [Suspect]
     Active Substance: SIROLIMUS
     Indication: RENAL TRANSPLANT
     Route: 048
     Dates: start: 20170127

REACTIONS (4)
  - Thrombosis [None]
  - Pneumonia [None]
  - Vomiting [None]
  - Therapy interrupted [None]

NARRATIVE: CASE EVENT DATE: 20200610
